FAERS Safety Report 9429728 (Version 1)
Quarter: 2013Q3

REPORT INFORMATION
  Report Type: Spontaneous
  Country: BR (occurrence: None)
  Receive Date: 20130726
  Receipt Date: 20130726
  Transmission Date: 20140515
  Serious: Yes (Hospitalization, Other)
  Sender: FDA-Public Use
  Company Number: DSJ-2013-16331

PATIENT
  Age: 70 Year
  Sex: Male
  Weight: 140 kg

DRUGS (4)
  1. BENICAR (OLMESARTAN MEDOXOMIL) (TABLET) (OLMESARTAN MEDOXOMIL) [Suspect]
     Indication: HYPERTENSION
     Dosage: 40 MG, 1 IN 1 D, PER ORAL
     Dates: start: 2011
  2. METFORMIN [Concomitant]
  3. GLICLAZIDE (GLICLAZIDE) (GLICLAZIDE) [Concomitant]
  4. SIMVASTATIN (SIMVASTATIN) (SIMVASTATIN) [Concomitant]

REACTIONS (1)
  - Penile cancer [None]
